FAERS Safety Report 25750702 (Version 1)
Quarter: 2025Q3

REPORT INFORMATION
  Report Type: Spontaneous
  Country: EU (occurrence: EU)
  Receive Date: 20250902
  Receipt Date: 20250902
  Transmission Date: 20251020
  Serious: Yes (Hospitalization)
  Sender: MYLAN
  Company Number: EU-MYLANLABS-2025M1073950

PATIENT
  Age: 33 Year
  Sex: Male

DRUGS (2)
  1. AMIODARONE [Suspect]
     Active Substance: AMIODARONE
     Indication: Arrhythmia
  2. SOTALOL [Suspect]
     Active Substance: SOTALOL
     Indication: Arrhythmia

REACTIONS (1)
  - Treatment failure [Unknown]
